FAERS Safety Report 9873652 (Version 1)
Quarter: 2014Q1

REPORT INFORMATION
  Report Type: Other
  Country: US (occurrence: US)
  Receive Date: 20140206
  Receipt Date: 20140206
  Transmission Date: 20141002
  Serious: No
  Sender: FDA-Public Use
  Company Number: US-ACORDA-ACO_34706_2013

PATIENT
  Age: 59 Year
  Sex: Female
  Weight: 124.72 kg

DRUGS (6)
  1. AMPYRA [Suspect]
     Indication: GAIT DISTURBANCE
     Dosage: 10 MG, Q 12 HRS
     Route: 048
     Dates: start: 201302, end: 201302
  2. AMPYRA [Suspect]
     Dosage: 10 UNK, UNK
     Route: 048
     Dates: start: 2013, end: 2013
  3. BETASERON [Concomitant]
     Indication: MULTIPLE SCLEROSIS
  4. LOSARTAN [Concomitant]
     Indication: HYPERTENSION
  5. LEVOTHYROXINE [Concomitant]
     Indication: HYPOTHYROIDISM
  6. SIMVASTATIN [Concomitant]
     Indication: BLOOD CHOLESTEROL INCREASED

REACTIONS (1)
  - Headache [Recovered/Resolved]
